FAERS Safety Report 6866977-X (Version None)
Quarter: 2010Q3

REPORT INFORMATION
  Report Type: 
  Country: None (occurrence: None)
  Receive Date: 20100722
  Receipt Date: 20100721
  Transmission Date: 20110219
  Serious: Yes (Death)
  Sender: FDA-Public Use
  Company Number: US-ROXANE LABORATORIES, INC.-2010-RO-00890RO

PATIENT
  Age: 59 Year
  Sex: Male

DRUGS (2)
  1. METHADONE HCL [Suspect]
  2. COCAINE [Suspect]

REACTIONS (1)
  - THERMAL BURN [None]
